FAERS Safety Report 12904986 (Version 1)
Quarter: 2016Q4

REPORT INFORMATION
  Report Type: Report from Study
  Country: None (occurrence: CL)
  Receive Date: 20161102
  Receipt Date: 20161102
  Transmission Date: 20170207
  Serious: Yes (Other)
  Sender: FDA-Public Use
  Company Number: CL-ABBVIE-16K-034-1649954-00

PATIENT
  Age: 15 Year
  Sex: Female

DRUGS (5)
  1. METHOTREXATE. [Concomitant]
     Active Substance: METHOTREXATE
     Indication: PRODUCT USED FOR UNKNOWN INDICATION
     Dosage: 5 DOSES
     Dates: end: 20160930
  2. METICEL [Concomitant]
     Indication: UVEITIS
  3. METHOTREXATE. [Concomitant]
     Active Substance: METHOTREXATE
     Dosage: 3 DOSES
     Dates: start: 20160930
  4. NITROFURANTOIN. [Concomitant]
     Active Substance: NITROFURANTOIN
     Indication: PYELONEPHRITIS
  5. HUMIRA [Suspect]
     Active Substance: ADALIMUMAB
     Indication: JUVENILE IDIOPATHIC ARTHRITIS
     Route: 058
     Dates: start: 20110930

REACTIONS (2)
  - Renal cyst [Not Recovered/Not Resolved]
  - Blood urine present [Unknown]

NARRATIVE: CASE EVENT DATE: 201605
